FAERS Safety Report 6604177-9 (Version None)
Quarter: 2010Q1

REPORT INFORMATION
  Report Type: 
  Country: None (occurrence: None)
  Receive Date: 20100226
  Receipt Date: 20090616
  Transmission Date: 20100710
  Serious: Yes (Other)
  Sender: FDA-Public Use
  Company Number: A0792974A

PATIENT
  Age: 65 Year
  Sex: Male

DRUGS (4)
  1. LAMOTRIGINE [Suspect]
     Indication: EPILEPSY
     Dosage: 100MG PER DAY
     Route: 048
     Dates: start: 20090101
  2. LAMICTAL CD [Suspect]
     Indication: EPILEPSY
     Dosage: 100MG PER DAY
     Route: 048
  3. PHENYTOIN [Concomitant]
  4. OLMESARTAN MEDOXOMIL [Concomitant]

REACTIONS (2)
  - CHEMOTHERAPEUTIC DRUG LEVEL BELOW THERAPEUTIC [None]
  - CONVULSION [None]
